FAERS Safety Report 5280160-3 (Version None)
Quarter: 2007Q1

REPORT INFORMATION
  Report Type: 
  Country: None (occurrence: None)
  Receive Date: 20070326
  Receipt Date: 20070326
  Transmission Date: 20070707
  Serious: No
  Sender: FDA-Public Use
  Company Number: None

PATIENT
  Age: 70 Year
  Sex: Female
  Weight: 61.6892 kg

DRUGS (1)
  1. ACTOS [Suspect]
     Indication: DIABETES MELLITUS
     Dosage: 45 MG ONCE A DAY PO
     Route: 048
     Dates: start: 20070101, end: 20070220

REACTIONS (5)
  - CHEST DISCOMFORT [None]
  - DIZZINESS [None]
  - FEELING ABNORMAL [None]
  - NAUSEA [None]
  - PALPITATIONS [None]
